FAERS Safety Report 15785492 (Version 2)
Quarter: 2019Q2

REPORT INFORMATION
  Report Type: Spontaneous
  Country: JP (occurrence: JP)
  Receive Date: 20190103
  Receipt Date: 20190402
  Transmission Date: 20190711
  Serious: Yes (Hospitalization, Other)
  Sender: FDA-Public Use
  Company Number: JP-BRISTOL-MYERS SQUIBB COMPANY-BMS-2018-122987

PATIENT
  Age: 77 Year
  Sex: Male
  Weight: 51.6 kg

DRUGS (2)
  1. OPDIVO [Suspect]
     Active Substance: NIVOLUMAB
     Indication: GASTRIC CANCER
     Dosage: 240 MG/DAY
     Route: 041
     Dates: start: 20181121, end: 20181219
  2. LOXOPROFEN [Concomitant]
     Active Substance: LOXOPROFEN
     Indication: MALIGNANT ASCITES
     Route: 065

REACTIONS (6)
  - Malnutrition [Not Recovered/Not Resolved]
  - Cachexia [Unknown]
  - Decreased appetite [Not Recovered/Not Resolved]
  - Loss of personal independence in daily activities [Unknown]
  - Eating disorder [Not Recovered/Not Resolved]
  - Malignant neoplasm progression [Unknown]

NARRATIVE: CASE EVENT DATE: 20181219
